FAERS Safety Report 10159529 (Version 1)
Quarter: 2014Q2

REPORT INFORMATION
  Report Type: Spontaneous
  Country: US (occurrence: None)
  Receive Date: 20140507
  Receipt Date: 20140507
  Transmission Date: 20141212
  Serious: Yes (Life-Threatening, Hospitalization)
  Sender: FDA-Public Use
  Company Number: None

PATIENT
  Age: 19 Year
  Sex: Female
  Weight: 122.47 kg

DRUGS (1)
  1. SPRINTEC [Suspect]
     Indication: CONTRACEPTION
     Dosage: ONCE DAILY TAKEN BY MOUTH
     Route: 048
     Dates: start: 20140211, end: 20140309

REACTIONS (3)
  - Asthenia [None]
  - Pulmonary embolism [None]
  - Fatigue [None]
